FAERS Safety Report 5639318-3 (Version None)
Quarter: 2008Q1

REPORT INFORMATION
  Report Type: 
  Country: None (occurrence: None)
  Receive Date: 20080226
  Receipt Date: 20080219
  Transmission Date: 20080703
  Serious: Yes (Other)
  Sender: FDA-Public Use
  Company Number: US-ALLERGAN-0801972US

PATIENT
  Sex: Female

DRUGS (1)
  1. BOTOX [Suspect]
     Indication: FACIAL PARESIS
     Dosage: UNK, SINGLE
     Route: 030
     Dates: start: 20070101, end: 20070101

REACTIONS (1)
  - FACIAL PARESIS [None]
